FAERS Safety Report 9738587 (Version 3)
Quarter: 2014Q2

REPORT INFORMATION
  Report Type: Report from Study
  Country: DE (occurrence: DE)
  Receive Date: 20131209
  Receipt Date: 20140417
  Transmission Date: 20141212
  Serious: Yes (Hospitalization)
  Sender: FDA-Public Use
  Company Number: DE-ROCHE-1262941

PATIENT
  Age: 52 Year
  Sex: Female
  Weight: 70 kg

DRUGS (18)
  1. PERTUZUMAB [Suspect]
     Indication: BREAST CANCER
     Dosage: LOADING DOSE
     Route: 042
     Dates: start: 20130719, end: 20130719
  2. PERTUZUMAB [Suspect]
     Dosage: MAINTENANCE DOSE
     Route: 042
     Dates: start: 20130809
  3. TRASTUZUMAB [Suspect]
     Indication: BREAST CANCER
     Route: 042
     Dates: start: 20130719, end: 20130719
  4. TRASTUZUMAB [Suspect]
     Route: 042
     Dates: start: 20130809
  5. TRASTUZUMAB [Suspect]
     Route: 042
     Dates: start: 20130830
  6. TRASTUZUMAB [Suspect]
     Route: 042
     Dates: start: 20130920
  7. TRASTUZUMAB [Suspect]
     Route: 042
     Dates: start: 20131011
  8. TRASTUZUMAB [Suspect]
     Route: 042
     Dates: start: 20131122
  9. DOCETAXEL [Suspect]
     Indication: BREAST CANCER
     Route: 042
     Dates: start: 20130719
  10. DOCETAXEL [Suspect]
     Route: 042
     Dates: start: 20130809
  11. DOCETAXEL [Suspect]
     Route: 042
     Dates: start: 20130830
  12. DOCETAXEL [Suspect]
     Route: 042
     Dates: start: 20130920
  13. DOCETAXEL [Suspect]
     Route: 042
     Dates: start: 20131011
  14. ZOFRAN [Concomitant]
     Route: 048
     Dates: start: 20130719
  15. OMEPRAZOLE [Concomitant]
     Route: 048
     Dates: start: 20130719
  16. FORTECORTIN [Concomitant]
     Route: 048
     Dates: start: 20130718
  17. DEXAMETHASONE [Concomitant]
     Route: 042
     Dates: start: 20130719
  18. METOCLOPRAMID [Concomitant]
     Route: 048
     Dates: start: 20130720

REACTIONS (5)
  - Diarrhoea [Recovered/Resolved]
  - Vomiting [Recovered/Resolved]
  - Nausea [Recovered/Resolved]
  - Mucosal inflammation [Recovered/Resolved]
  - General physical health deterioration [Unknown]
